FAERS Safety Report 23883557 (Version 8)
Quarter: 2024Q4

REPORT INFORMATION
  Report Type: Spontaneous
  Country: US (occurrence: US)
  Receive Date: 20240522
  Receipt Date: 20241230
  Transmission Date: 20250115
  Serious: Yes (Death, Hospitalization)
  Sender: DAIICHI
  Company Number: US-DAIICHI SANKYO, INC.-DSU-2024-121622AA

PATIENT
  Sex: Male

DRUGS (4)
  1. VANFLYTA [Suspect]
     Active Substance: QUIZARTINIB DIHYDROCHLORIDE
     Indication: Acute myeloid leukaemia
     Dosage: 35.4 (UNK UNIT), QD
     Route: 048
     Dates: start: 20240426
  2. VANFLYTA [Suspect]
     Active Substance: QUIZARTINIB DIHYDROCHLORIDE
     Dosage: 17.7 MG, QD
     Route: 048
  3. VANFLYTA [Suspect]
     Active Substance: QUIZARTINIB DIHYDROCHLORIDE
     Dosage: 17.7 MG, QD
     Route: 048
     Dates: start: 20240426
  4. VANFLYTA [Suspect]
     Active Substance: QUIZARTINIB DIHYDROCHLORIDE
     Dosage: 35.4 MG, QD
     Route: 048

REACTIONS (7)
  - Death [Fatal]
  - Localised infection [Recovered/Resolved]
  - Chest discomfort [Recovering/Resolving]
  - Full blood count decreased [Recovering/Resolving]
  - Hernia [Not Recovered/Not Resolved]
  - Haemoglobin decreased [Recovered/Resolved]
  - Incorrect dose administered [Recovered/Resolved]
